FAERS Safety Report 22300428 (Version 1)
Quarter: 2023Q2

REPORT INFORMATION
  Report Type: Spontaneous
  Country: DE (occurrence: DE)
  Receive Date: 20230509
  Receipt Date: 20230509
  Transmission Date: 20230722
  Serious: Yes (Other)
  Sender: FDA-Public Use
  Company Number: None

PATIENT
  Sex: Male
  Weight: 72 kg

DRUGS (3)
  1. PREDNISOLONE [Suspect]
     Active Substance: PREDNISOLONE
     Indication: Cataract operation
     Dosage: THE FOLLOWING 8 DAYS 4 TIMES A DAY FOR 4 WEEKS THEN TAPERING OFF
     Dates: start: 20230111
  2. BISOPROLOL [Concomitant]
     Active Substance: BISOPROLOL
     Indication: Vascular graft
     Dosage: UNK
  3. ELIQUIS [Concomitant]
     Active Substance: APIXABAN
     Indication: Vascular graft
     Dosage: UNK

REACTIONS (5)
  - Atrial fibrillation [Not Recovered/Not Resolved]
  - Hypertensive crisis [Not Recovered/Not Resolved]
  - Blood pressure increased [Unknown]
  - Heart rate irregular [Unknown]
  - Blood pressure fluctuation [Unknown]

NARRATIVE: CASE EVENT DATE: 20230101
